FAERS Safety Report 17540888 (Version 1)
Quarter: 2020Q1

REPORT INFORMATION
  Report Type: Spontaneous
  Country: US (occurrence: US)
  Receive Date: 20200313
  Receipt Date: 20200313
  Transmission Date: 20200409
  Serious: No
  Sender: FDA-Public Use
  Company Number: US-TARO-2019TAR00176

PATIENT
  Age: 67 Year
  Sex: Female
  Weight: 79.37 kg

DRUGS (19)
  1. LAMOTRIGINE TABLETS 25 MG [Suspect]
     Active Substance: LAMOTRIGINE
     Indication: AFFECTIVE DISORDER
  2. CYMBALTA [Concomitant]
     Active Substance: DULOXETINE HYDROCHLORIDE
     Dosage: 60 MG, 2X/DAY
  3. VICTOZA [Concomitant]
     Active Substance: LIRAGLUTIDE
     Dosage: 1.2 ?G, 1X/DAY
  4. LAMOTRIGINE TABLETS 25 MG [Suspect]
     Active Substance: LAMOTRIGINE
     Indication: FIBROMYALGIA
     Dosage: 50 MG, 1X/DAY AT NIGHTTIME (TOTAL DAILY DOSE 350 MG)
     Route: 048
     Dates: start: 201902
  5. TOPAMAX [Concomitant]
     Active Substance: TOPIRAMATE
     Dosage: 25 MG, 1X/DAY
  6. ^PEPCID TYPE THING^ [Concomitant]
  7. ZYRTEC [Concomitant]
     Active Substance: CETIRIZINE HYDROCHLORIDE
     Dosage: 10 MG, 1X/DAY
  8. ATIVAN [Concomitant]
     Active Substance: LORAZEPAM
     Dosage: 1.5 MG, 1X/DAY
  9. ADDERALL [Concomitant]
     Active Substance: AMPHETAMINE ASPARTATE\AMPHETAMINE SULFATE\DEXTROAMPHETAMINE SACCHARATE\DEXTROAMPHETAMINE SULFATE
     Dosage: 10 MG, 2X/DAY
  10. NEURONTIN [Concomitant]
     Active Substance: GABAPENTIN
     Dosage: 800 MG, 1X/DAY
  11. NEURONTIN [Concomitant]
     Active Substance: GABAPENTIN
     Dosage: UNK, AS NEEDED
  12. PROGESTERONE. [Concomitant]
     Active Substance: PROGESTERONE
     Dosage: 200 MG, 1X/DAY
  13. LAMOTRIGINE TABLETS 100 MG [Suspect]
     Active Substance: LAMOTRIGINE
     Indication: FIBROMYALGIA
     Dosage: 100 MG, 3X/DAY AT 7 OR 8 AM, MIDDDAY, AND MAYBE 6 HOURS LATER (TOTAL DAILY DOSE 350 MG)
     Route: 048
     Dates: start: 201902
  14. LAMOTRIGINE TABLETS 100 MG [Suspect]
     Active Substance: LAMOTRIGINE
     Indication: AFFECTIVE DISORDER
  15. OMEPRAZOLE. [Concomitant]
     Active Substance: OMEPRAZOLE
     Dosage: 40 MG, 1X/DAY
  16. SYNTHROID [Concomitant]
     Active Substance: LEVOTHYROXINE SODIUM
     Dosage: 0.88 ?G, 1X/DAY
  17. ESTRADIOL. [Concomitant]
     Active Substance: ESTRADIOL
     Dosage: 1 MG, 1X/DAY
  18. NEURONTIN [Concomitant]
     Active Substance: GABAPENTIN
     Dosage: UNK
  19. TOPAMAX [Concomitant]
     Active Substance: TOPIRAMATE
     Dosage: 50 MG, 1X/DAY

REACTIONS (11)
  - Pain [Unknown]
  - Influenza like illness [Unknown]
  - Dry throat [Unknown]
  - Off label use [Not Recovered/Not Resolved]
  - Visual impairment [Unknown]
  - Energy increased [Unknown]
  - Drug ineffective for unapproved indication [Not Recovered/Not Resolved]
  - Attention deficit/hyperactivity disorder [Unknown]
  - Sleep disorder [Unknown]
  - Confusional state [Recovered/Resolved]
  - Thinking abnormal [Not Recovered/Not Resolved]

NARRATIVE: CASE EVENT DATE: 201902
